FAERS Safety Report 25469755 (Version 1)
Quarter: 2025Q2

REPORT INFORMATION
  Report Type: Report from Study
  Country: US (occurrence: US)
  Receive Date: 20250623
  Receipt Date: 20250623
  Transmission Date: 20250716
  Serious: Yes (Hospitalization)
  Sender: PFIZER
  Company Number: US-PFIZER INC-202500070383

PATIENT
  Age: 63 Year
  Sex: Female
  Weight: 71.202 kg

DRUGS (9)
  1. TUKYSA [Suspect]
     Active Substance: TUCATINIB
     Indication: Breast cancer female
     Dosage: 250MG BY MOUTH TWICE DAILY
     Route: 048
     Dates: start: 20250213
  2. TUKYSA [Suspect]
     Active Substance: TUCATINIB
     Dosage: 250MG BY MOUTH TWICE DAILY
     Route: 048
     Dates: start: 20250213
  3. TUKYSA [Suspect]
     Active Substance: TUCATINIB
     Dosage: 250 MG, 2X/DAY
     Route: 048
  4. TUKYSA [Suspect]
     Active Substance: TUCATINIB
     Dosage: 250 MG, 2X/DAY
     Route: 048
  5. TUKYSA [Suspect]
     Active Substance: TUCATINIB
     Dosage: 250 MG, 2X/DAY
     Route: 048
     Dates: start: 20250325
  6. CAPECITABINE [Suspect]
     Active Substance: CAPECITABINE
     Indication: Breast cancer female
     Dosage: 1500 MG, 2X/DAY (14DAYS ON AND 7 DAYS OFF)
     Route: 048
     Dates: start: 20250213
  7. CAPECITABINE [Suspect]
     Active Substance: CAPECITABINE
     Dosage: 1500MG BY MOUTH TWICE DAILY
     Route: 048
     Dates: start: 20250213
  8. CAPECITABINE [Suspect]
     Active Substance: CAPECITABINE
     Dosage: 1500 MG, 2X/DAY
     Route: 048
     Dates: start: 20250325
  9. HERCEPTIN [Concomitant]
     Active Substance: TRASTUZUMAB
     Dates: start: 20250617

REACTIONS (22)
  - Hypoaesthesia [Recovering/Resolving]
  - Liver function test increased [Unknown]
  - Nausea [Unknown]
  - Dizziness [Unknown]
  - Headache [Unknown]
  - Constipation [Unknown]
  - Ageusia [Unknown]
  - Decreased appetite [Unknown]
  - Blood potassium decreased [Not Recovered/Not Resolved]
  - Feeling cold [Unknown]
  - Asthenia [Unknown]
  - Fluid retention [Unknown]
  - Inflammation [Unknown]
  - Malaise [Unknown]
  - Muscle spasms [Unknown]
  - Balance disorder [Unknown]
  - Hypoaesthesia [Unknown]
  - Blister [Not Recovered/Not Resolved]
  - Skin discolouration [Not Recovered/Not Resolved]
  - Dizziness [Unknown]
  - Eye disorder [Unknown]
  - Product dose omission in error [Unknown]

NARRATIVE: CASE EVENT DATE: 20250401
